FAERS Safety Report 7183630-6 (Version None)
Quarter: 2010Q4

REPORT INFORMATION
  Report Type: 
  Country: None (occurrence: None)
  Receive Date: 20101220
  Receipt Date: 20101220
  Transmission Date: 20110411
  Serious: Yes (Hospitalization)
  Sender: FDA-Public Use
  Company Number: None

PATIENT
  Age: 85 Year
  Sex: Female
  Weight: 70 kg

DRUGS (9)
  1. COUMADIN [Suspect]
     Indication: ATRIAL FIBRILLATION
     Dosage: 2MG DAILY PO  CHRONIC
     Route: 048
  2. MIRALAX [Concomitant]
  3. METOPROLOL [Concomitant]
  4. MIRAPEX [Concomitant]
  5. CARBIDOPA AND LEVODOPA [Concomitant]
  6. ZOLPIDEM [Concomitant]
  7. CALCIUM CARBONATE [Concomitant]
  8. PROTONIX [Concomitant]
  9. TYLENOL [Concomitant]

REACTIONS (4)
  - GASTRIC ULCER [None]
  - HAEMATEMESIS [None]
  - HIATUS HERNIA [None]
  - NAUSEA [None]
